FAERS Safety Report 23108309 (Version 1)
Quarter: 2023Q4

REPORT INFORMATION
  Report Type: Spontaneous
  Country: JP (occurrence: JP)
  Receive Date: 20231026
  Receipt Date: 20231026
  Transmission Date: 20240110
  Serious: Yes (Other)
  Sender: FDA-Public Use
  Company Number: JP-BRISTOL-MYERS SQUIBB COMPANY-2023-152377

PATIENT
  Age: 63 Year
  Sex: Female
  Weight: 56.6 kg

DRUGS (21)
  1. REVLIMID [Suspect]
     Active Substance: LENALIDOMIDE
     Indication: Follicular lymphoma
     Dates: start: 20220812, end: 20220901
  2. REVLIMID [Suspect]
     Active Substance: LENALIDOMIDE
     Dates: start: 20220908, end: 20220928
  3. REVLIMID [Suspect]
     Active Substance: LENALIDOMIDE
     Dates: start: 20221006, end: 20221026
  4. REVLIMID [Suspect]
     Active Substance: LENALIDOMIDE
     Dates: start: 20221110, end: 20221130
  5. REVLIMID [Suspect]
     Active Substance: LENALIDOMIDE
     Dates: start: 20221208, end: 20221228
  6. REVLIMID [Suspect]
     Active Substance: LENALIDOMIDE
     Dates: start: 20230105, end: 20230125
  7. REVLIMID [Suspect]
     Active Substance: LENALIDOMIDE
     Dates: start: 20230202, end: 20230222
  8. REVLIMID [Suspect]
     Active Substance: LENALIDOMIDE
     Dates: start: 20230302, end: 20230322
  9. REVLIMID [Suspect]
     Active Substance: LENALIDOMIDE
     Dates: start: 20230330, end: 20230419
  10. REVLIMID [Suspect]
     Active Substance: LENALIDOMIDE
     Dates: start: 20230427, end: 20230517
  11. REVLIMID [Suspect]
     Active Substance: LENALIDOMIDE
     Dates: start: 20230525, end: 20230614
  12. REVLIMID [Suspect]
     Active Substance: LENALIDOMIDE
     Dates: start: 20230622, end: 20230712
  13. RITUXIMAB [Suspect]
     Active Substance: RITUXIMAB
     Indication: Follicular lymphoma
     Dates: start: 20220818, end: 20220818
  14. RITUXIMAB [Suspect]
     Active Substance: RITUXIMAB
     Dates: start: 20220825, end: 20220825
  15. RITUXIMAB [Suspect]
     Active Substance: RITUXIMAB
     Dates: start: 20220901, end: 20220901
  16. RITUXIMAB [Suspect]
     Active Substance: RITUXIMAB
     Dates: start: 20220908, end: 20220908
  17. RITUXIMAB [Suspect]
     Active Substance: RITUXIMAB
     Dates: start: 20221006, end: 20221006
  18. RITUXIMAB [Suspect]
     Active Substance: RITUXIMAB
     Dates: start: 20221110, end: 20221110
  19. RITUXIMAB [Suspect]
     Active Substance: RITUXIMAB
     Dates: start: 20221208, end: 20221208
  20. RITUXIMAB [Suspect]
     Active Substance: RITUXIMAB
     Dates: start: 20220812, end: 20220812
  21. SULFAMETHOXAZOLE\TRIMETHOPRIM [Concomitant]
     Active Substance: SULFAMETHOXAZOLE\TRIMETHOPRIM
     Indication: Infection prophylaxis
     Route: 048
     Dates: start: 20220908

REACTIONS (1)
  - Colitis ischaemic [Unknown]

NARRATIVE: CASE EVENT DATE: 20221201
